FAERS Safety Report 4675518-7 (Version None)
Quarter: 2005Q2

REPORT INFORMATION
  Report Type: 
  Country: None (occurrence: None)
  Receive Date: 20050527
  Receipt Date: 20050401
  Transmission Date: 20051028
  Serious: Yes (Other)
  Sender: FDA-Public Use
  Company Number: US-BRISTOL-MYERS SQUIBB COMPANY-12918900

PATIENT
  Age: 60 Year
  Sex: Male

DRUGS (3)
  1. ABILIFY [Suspect]
     Indication: SCHIZOPHRENIA
     Route: 048
     Dates: start: 20050326
  2. HALDOL [Concomitant]
  3. COGENTIN [Concomitant]

REACTIONS (3)
  - HYPERTENSION [None]
  - RASH MACULO-PAPULAR [None]
  - SWOLLEN TONGUE [None]
